FAERS Safety Report 16082232 (Version 1)
Quarter: 2019Q1

REPORT INFORMATION
  Report Type: Spontaneous
  Country: US (occurrence: US)
  Receive Date: 20190317
  Receipt Date: 20190317
  Transmission Date: 20190418
  Serious: Yes (Other)
  Sender: FDA-Public Use
  Company Number: US-009507513-1903USA003869

PATIENT
  Age: 7 Year
  Sex: Male

DRUGS (3)
  1. CARBOPLATIN. [Suspect]
     Active Substance: CARBOPLATIN
     Indication: ASTROCYTOMA MALIGNANT
     Dates: end: 201605
  2. VINCRISTINE [Suspect]
     Active Substance: VINCRISTINE
     Indication: ASTROCYTOMA MALIGNANT
     Dates: end: 201605
  3. TEMODAR [Suspect]
     Active Substance: TEMOZOLOMIDE
     Indication: ASTROCYTOMA MALIGNANT
     Route: 048
     Dates: end: 201504

REACTIONS (2)
  - Dysphagia [Unknown]
  - Astrocytoma malignant [Unknown]

NARRATIVE: CASE EVENT DATE: 201902
